FAERS Safety Report 17845277 (Version 1)
Quarter: 2020Q2

REPORT INFORMATION
  Report Type: Report from Study
  Country: US (occurrence: US)
  Receive Date: 20200601
  Receipt Date: 20200601
  Transmission Date: 20200714
  Serious: Yes (Other)
  Sender: FDA-Public Use
  Company Number: US-TEVA-2020-US-1240403

PATIENT
  Sex: Female

DRUGS (1)
  1. COPAXONE [Suspect]
     Active Substance: GLATIRAMER ACETATE
     Indication: MULTIPLE SCLEROSIS
     Dosage: FORM STRENGTH: UNKNOWN
     Route: 058
     Dates: start: 20080101

REACTIONS (14)
  - Needle issue [Unknown]
  - Injection site irritation [Unknown]
  - Varicose vein [Unknown]
  - Anxiety [Unknown]
  - Injection site urticaria [Unknown]
  - Feeling hot [Unknown]
  - Flushing [Unknown]
  - Injection site discolouration [Unknown]
  - Injection site vesicles [Unknown]
  - Palpitations [Unknown]
  - Wrong technique in product usage process [Unknown]
  - Vein rupture [Unknown]
  - Chest pain [Unknown]
  - Injection site bruising [Unknown]
